FAERS Safety Report 13590653 (Version 1)
Quarter: 2017Q2

REPORT INFORMATION
  Report Type: Spontaneous
  Country: US (occurrence: US)
  Receive Date: 20170529
  Receipt Date: 20170529
  Transmission Date: 20170830
  Serious: No
  Sender: FDA-Public Use
  Company Number: US-WEST-WARD PHARMACEUTICALS CORP.-US-H14001-16-02287

PATIENT
  Sex: Female

DRUGS (2)
  1. PREDNISONE. [Suspect]
     Active Substance: PREDNISONE
     Indication: PLATELET COUNT DECREASED
     Route: 065
  2. STEROIDS [Suspect]
     Active Substance: UNSPECIFIED INGREDIENT
     Indication: PLATELET COUNT DECREASED
     Route: 065

REACTIONS (1)
  - Weight increased [Unknown]
